FAERS Safety Report 6863214-7 (Version None)
Quarter: 2010Q3

REPORT INFORMATION
  Report Type: 
  Country: None (occurrence: None)
  Receive Date: 20100721
  Receipt Date: 20100707
  Transmission Date: 20110219
  Serious: Yes (Other)
  Sender: FDA-Public Use
  Company Number: PHHY2010US45563

PATIENT
  Sex: Female

DRUGS (4)
  1. RECLAST [Suspect]
     Dosage: UNK
     Dates: start: 20090601
  2. SIMVASTATIN [Concomitant]
     Dosage: UNK
  3. ATENOLOL [Concomitant]
     Dosage: UNK
  4. OMEPRAZOLE [Concomitant]
     Dosage: UNK

REACTIONS (6)
  - ARTHROPATHY [None]
  - BONE PAIN [None]
  - MUSCULOSKELETAL DISCOMFORT [None]
  - ONYCHOCLASIS [None]
  - PAIN [None]
  - SPINAL FRACTURE [None]
